FAERS Safety Report 23391617 (Version 1)
Quarter: 2024Q1

REPORT INFORMATION
  Report Type: Spontaneous
  Country: US (occurrence: US)
  Receive Date: 20240111
  Receipt Date: 20240111
  Transmission Date: 20240410
  Serious: Yes (Other)
  Sender: FDA-Public Use
  Company Number: US-DRL-USA-LIT/USA/23/0032295

PATIENT
  Age: 14 Year
  Sex: Female

DRUGS (1)
  1. CLOFARABINE [Suspect]
     Active Substance: CLOFARABINE
     Indication: Rosai-Dorfman syndrome

REACTIONS (5)
  - Langerhans^ cell histiocytosis [Recovered/Resolved]
  - Anal rash [Recovered/Resolved]
  - Vulvovaginal rash [Recovered/Resolved]
  - Drug intolerance [Unknown]
  - Product use in unapproved indication [Unknown]
